FAERS Safety Report 17713200 (Version 1)
Quarter: 2020Q2

REPORT INFORMATION
  Report Type: Spontaneous
  Country: US (occurrence: US)
  Receive Date: 20200427
  Receipt Date: 20200427
  Transmission Date: 20200714
  Serious: No
  Sender: FDA-Public Use
  Company Number: None

PATIENT
  Age: 69 Year
  Sex: Female

DRUGS (1)
  1. FORTEO [Suspect]
     Active Substance: TERIPARATIDE
     Dosage: ?          OTHER DOSE:PENS;?
     Route: 058
     Dates: start: 201810

REACTIONS (1)
  - Dizziness [None]

NARRATIVE: CASE EVENT DATE: 20200427
